FAERS Safety Report 6049792-9 (Version None)
Quarter: 2009Q1

REPORT INFORMATION
  Report Type: 
  Country: None (occurrence: None)
  Receive Date: 20090121
  Receipt Date: 20080313
  Transmission Date: 20090719
  Serious: Yes (Hospitalization, Disabling)
  Sender: FDA-Public Use
  Company Number: HQWYE186816JUL04

PATIENT
  Age: 58 Year
  Sex: Female
  Weight: 97.16 kg

DRUGS (8)
  1. PREMPRO [Suspect]
     Indication: HORMONE REPLACEMENT THERAPY
     Dosage: ORAL
     Route: 048
     Dates: start: 19980119, end: 20021129
  2. DIOVAN [Concomitant]
  3. HYDROCODONE (HYDROCODONE) [Concomitant]
  4. LIPITOR [Concomitant]
  5. PLENDIL [Concomitant]
  6. DEMADEX [Concomitant]
  7. GLYBURIDE [Concomitant]
  8. METOPROLOL TARTRATE [Concomitant]

REACTIONS (1)
  - CEREBRAL INFARCTION [None]
